FAERS Safety Report 10459460 (Version 2)
Quarter: 2015Q2

REPORT INFORMATION
  Report Type: Spontaneous
  Country: JP (occurrence: JP)
  Receive Date: 20140917
  Receipt Date: 20150415
  Transmission Date: 20150821
  Serious: Yes (Death)
  Sender: FDA-Public Use
  Company Number: JP-MALLINCKRODT-T201403461

PATIENT
  Age: 65 Year
  Sex: Male

DRUGS (15)
  1. MAGLAX [Concomitant]
     Active Substance: MAGNESIUM OXIDE
     Dosage: 1000 MG, UNK
     Route: 048
     Dates: end: 20140415
  2. LYRICA [Concomitant]
     Active Substance: PREGABALIN
     Dosage: 224 MG, UNK
     Route: 048
     Dates: end: 20140413
  3. DECADRON [Concomitant]
     Active Substance: DEXAMETHASONE
     Dosage: 2 MG, UNK
     Route: 048
     Dates: end: 20140415
  4. HUMULIN R [Concomitant]
     Active Substance: INSULIN HUMAN
     Dosage: UNK
     Route: 051
     Dates: start: 20140303, end: 20140325
  5. METHADONE [Suspect]
     Active Substance: METHADONE HYDROCHLORIDE
     Indication: CANCER PAIN
     Dosage: 10 MG, (20 MG DAILY DOSE)
     Route: 048
     Dates: start: 20140227, end: 20140227
  6. METHADONE [Suspect]
     Active Substance: METHADONE HYDROCHLORIDE
     Dosage: 5 MG, (20 MG DAILY DOSE)
     Route: 048
     Dates: start: 20140327, end: 20140413
  7. OXINORM                            /00547301/ [Concomitant]
     Dosage: 15 MG, PRN
     Route: 048
     Dates: start: 20140226
  8. GLACTIV [Concomitant]
     Active Substance: SITAGLIPTIN
     Dosage: 50 MG, UNK
     Dates: end: 20140411
  9. METHADONE [Suspect]
     Active Substance: METHADONE HYDROCHLORIDE
     Dosage: 5 MG, (20 MG DAILY DOSE)
     Route: 048
     Dates: start: 20140310, end: 20140314
  10. PARIET [Concomitant]
     Active Substance: RABEPRAZOLE SODIUM
     Dosage: 10 MG, UNK
     Route: 048
     Dates: end: 20140411
  11. METHADONE [Suspect]
     Active Substance: METHADONE HYDROCHLORIDE
     Dosage: 5 MG, (15 MG DAILY DOSE)
     Route: 048
     Dates: start: 20140228, end: 20140309
  12. HYPEN                              /00613801/ [Concomitant]
     Active Substance: ETODOLAC
     Dosage: 200MG
     Route: 048
     Dates: end: 20140413
  13. METHADONE [Suspect]
     Active Substance: METHADONE HYDROCHLORIDE
     Dosage: 5 MG, (15 MG DAILY DOSE)
     Route: 048
     Dates: start: 20140315, end: 20140326
  14. MORPHIN HCL [Concomitant]
     Active Substance: MORPHINE HYDROCHLORIDE
     Dosage: 60 MG
     Route: 051
     Dates: start: 20140413, end: 20140414
  15. MORPHIN HCL [Concomitant]
     Active Substance: MORPHINE HYDROCHLORIDE
     Dosage: 84 MG
     Route: 051
     Dates: start: 20140415, end: 20140418

REACTIONS (3)
  - Lung adenocarcinoma [Fatal]
  - Somnolence [Recovered/Resolved]
  - Restlessness [Recovered/Resolved]

NARRATIVE: CASE EVENT DATE: 20140315
